FAERS Safety Report 13132575 (Version 2)
Quarter: 2018Q1

REPORT INFORMATION
  Report Type: Spontaneous
  Country: US (occurrence: US)
  Receive Date: 20170120
  Receipt Date: 20180215
  Transmission Date: 20180508
  Serious: No
  Sender: FDA-Public Use
  Company Number: US-TEVA-724125ACC

PATIENT
  Sex: Female

DRUGS (1)
  1. VERAPAMIL ER [Suspect]
     Active Substance: VERAPAMIL HYDROCHLORIDE
     Route: 065

REACTIONS (3)
  - Diarrhoea [Unknown]
  - Drug hypersensitivity [Unknown]
  - Drug ineffective [Unknown]
